FAERS Safety Report 4282167-1 (Version None)
Quarter: 2004Q1

REPORT INFORMATION
  Report Type: 
  Country: None (occurrence: None)
  Receive Date: 20040112
  Receipt Date: 20031120
  Transmission Date: 20041129
  Serious: No
  Sender: FDA-Public Use
  Company Number: PHEH2003US10849

PATIENT
  Sex: Male

DRUGS (2)
  1. ELIDEL [Suspect]
     Dosage: TOPICAL
     Route: 061
  2. ETHANOL(ETHANOL) [Suspect]

REACTIONS (2)
  - ERYTHEMA [None]
  - FEELING HOT [None]
